FAERS Safety Report 9112586 (Version 1)
Quarter: 2013Q1

REPORT INFORMATION
  Report Type: Report from Study
  Country: JP (occurrence: JP)
  Receive Date: 20130211
  Receipt Date: 20130211
  Transmission Date: 20140127
  Serious: Yes (Other)
  Sender: FDA-Public Use
  Company Number: JP-B.I. PHARMACEUTICALS,INC./RIDGEFIELD-2013-BI-03489GD

PATIENT
  Sex: 0

DRUGS (3)
  1. PRAMIPEXOLE [Suspect]
     Indication: DYSKINESIA
  2. PRAMIPEXOLE [Suspect]
     Indication: PARKINSON^S DISEASE
  3. LEVODOPA [Concomitant]
     Indication: PARKINSON^S DISEASE

REACTIONS (1)
  - On and off phenomenon [Unknown]
